FAERS Safety Report 25960900 (Version 3)
Quarter: 2025Q4

REPORT INFORMATION
  Report Type: Spontaneous
  Country: EU (occurrence: EU)
  Receive Date: 20251027
  Receipt Date: 20251112
  Transmission Date: 20260117
  Serious: Yes (Other)
  Sender: AUROBINDO
  Company Number: EU-ROCHE-10000402447

PATIENT
  Age: 52 Year
  Sex: Female
  Weight: 46 kg

DRUGS (6)
  1. PACLITAXEL [Suspect]
     Active Substance: PACLITAXEL
     Indication: Triple negative breast cancer
     Dosage: 149 MILLIGRAM (ON 11-JUL-2025, SHE RECEIVED MOST RECENT DOSE)
     Route: 042
     Dates: start: 20250425
  2. CARBOPLATIN [Suspect]
     Active Substance: CARBOPLATIN
     Indication: Triple negative breast cancer
     Dosage: 549 MILLIGRAM (ON 27-JUN-2025, SHE RECEIVED MOST RECENT DOSE)
     Route: 042
     Dates: start: 20250425
  3. DOXORUBICIN [Suspect]
     Active Substance: DOXORUBICIN
     Indication: Triple negative breast cancer
     Dosage: 89 MILLIGRAM (ON 19-SEP-2025, SHE RECEIVED MOST RECENT DOSE)
     Route: 042
     Dates: start: 20250718
  4. ATEZOLIZUMAB [Suspect]
     Active Substance: ATEZOLIZUMAB
     Indication: Triple negative breast cancer
     Dosage: 1200 MILLIGRAM (ON 29-AUG-2025, SHE RECEIVED MOST RECENT DOSE)
     Route: 042
     Dates: start: 20250425, end: 20250829
  5. TIRAGOLUMAB [Suspect]
     Active Substance: TIRAGOLUMAB
     Indication: Triple negative breast cancer
     Dosage: 600 MILLIGRAM (ON 29-AUG-2025, SHE RECEIVED MOST RECENT DOSE)
     Route: 042
     Dates: start: 20250425, end: 20250829
  6. CYCLOPHOSPHAMIDE [Suspect]
     Active Substance: CYCLOPHOSPHAMIDE
     Indication: Triple negative breast cancer
     Dosage: 894 MILLIGRAM (ON 19-SEP-2025, SHE RECEIVED MOST RECENT DOSE.)
     Route: 042
     Dates: start: 20250718

REACTIONS (1)
  - Immune-mediated myocarditis [Not Recovered/Not Resolved]

NARRATIVE: CASE EVENT DATE: 20250929
